FAERS Safety Report 23070676 (Version 1)
Quarter: 2023Q4

REPORT INFORMATION
  Report Type: Spontaneous
  Country: US (occurrence: US)
  Receive Date: 20231016
  Receipt Date: 20231016
  Transmission Date: 20240109
  Serious: No
  Sender: FDA-Public Use
  Company Number: US-Dermavant-000806

PATIENT
  Age: 55 Year
  Sex: Female

DRUGS (1)
  1. TAPINAROF [Suspect]
     Active Substance: TAPINAROF
     Indication: Psoriasis
     Dosage: AREA OF APPLICATION: BACK AND GENITALS
     Route: 061

REACTIONS (3)
  - Swelling [Unknown]
  - Skin irritation [Unknown]
  - Application site vesicles [Unknown]
